FAERS Safety Report 4521241-9 (Version None)
Quarter: 2004Q4

REPORT INFORMATION
  Report Type: 
  Country: None (occurrence: None)
  Receive Date: 20041206
  Receipt Date: 20041123
  Transmission Date: 20050328
  Serious: Yes (Hospitalization)
  Sender: FDA-Public Use
  Company Number: 041118-0000488

PATIENT
  Age: 65 Year
  Sex: Female

DRUGS (2)
  1. PENTOBARBITAL SODIUM (PENTOBARBITAL SODIUM) [Suspect]
  2. TRIAZOLAM [Suspect]

REACTIONS (2)
  - MULTIPLE DRUG OVERDOSE INTENTIONAL [None]
  - SUICIDE ATTEMPT [None]
